FAERS Safety Report 7587202-0 (Version None)
Quarter: 2011Q3

REPORT INFORMATION
  Report Type: 
  Country: None (occurrence: None)
  Receive Date: 20110701
  Receipt Date: 20110623
  Transmission Date: 20111222
  Serious: Yes (Hospitalization, Other)
  Sender: FDA-Public Use
  Company Number: US-BAYER-201037345NA

PATIENT
  Age: 20 Year
  Sex: Female
  Weight: 97.506 kg

DRUGS (3)
  1. YAZ [Suspect]
     Indication: PRODUCT USED FOR UNKNOWN INDICATION
     Route: 048
  2. PERCOCET [Concomitant]
     Route: 048
  3. SPIRONOLACTONE [Concomitant]
     Dosage: 100 MG, QD
     Route: 048

REACTIONS (5)
  - HERNIA REPAIR [None]
  - CHOLECYSTITIS CHRONIC [None]
  - DYSPEPSIA [None]
  - BILIARY DYSKINESIA [None]
  - PAIN [None]
